FAERS Safety Report 11233319 (Version 1)
Quarter: 2015Q3

REPORT INFORMATION
  Report Type: Spontaneous
  Country: US (occurrence: US)
  Receive Date: 20150702
  Receipt Date: 20150702
  Transmission Date: 20151125
  Serious: No
  Sender: FDA-Public Use
  Company Number: US-BRISTOL-MYERS SQUIBB COMPANY-BMS-2015-042958

PATIENT
  Sex: Female
  Weight: 175 kg

DRUGS (1)
  1. ABILIFY [Suspect]
     Active Substance: ARIPIPRAZOLE
     Indication: DELUSION
     Dosage: 20 MG, QD
     Route: 048
     Dates: start: 201303

REACTIONS (7)
  - Depressed mood [Unknown]
  - Weight increased [Unknown]
  - Off label use [Unknown]
  - Anxiety [Unknown]
  - Fatigue [Unknown]
  - Paranoia [Unknown]
  - Fear [Unknown]
